FAERS Safety Report 7344305-3 (Version None)
Quarter: 2011Q1

REPORT INFORMATION
  Report Type: 
  Country: None (occurrence: None)
  Receive Date: 20110310
  Receipt Date: 20101101
  Transmission Date: 20110831
  Serious: No
  Sender: FDA-Public Use
  Company Number: A0890183A

PATIENT
  Age: 63 Year
  Sex: Female

DRUGS (4)
  1. NICOTINE [Suspect]
  2. NICORETTE [Suspect]
  3. UNKNOWN [Suspect]
  4. NICORETTE [Suspect]

REACTIONS (6)
  - DRUG INTERACTION [None]
  - DRUG INEFFECTIVE [None]
  - PAIN [None]
  - DRUG ADMINISTRATION ERROR [None]
  - CONDITION AGGRAVATED [None]
  - ILL-DEFINED DISORDER [None]
